FAERS Safety Report 9799614 (Version 1)
Quarter: 2014Q1

REPORT INFORMATION
  Report Type: Spontaneous
  Country: US (occurrence: US)
  Receive Date: 20140106
  Receipt Date: 20140106
  Transmission Date: 20141002
  Serious: No
  Sender: FDA-Public Use
  Company Number: US-GILEAD-2010-0031593

PATIENT
  Age: 83 Year
  Sex: Female
  Weight: 79.38 kg

DRUGS (14)
  1. LETAIRIS [Suspect]
     Indication: PULMONARY ARTERIAL HYPERTENSION
     Route: 048
     Dates: start: 20100514
  2. AMLODIPINE [Concomitant]
  3. LASIX [Concomitant]
  4. AMIODARONE [Concomitant]
  5. BYSTOLIC [Concomitant]
  6. TRILIPIX [Concomitant]
  7. SINGULAIR [Concomitant]
  8. ADVAIR [Concomitant]
  9. SPIRIVA [Concomitant]
  10. ASPIRIN [Concomitant]
  11. DARVOCET [Concomitant]
  12. ULTRAM [Concomitant]
  13. RA COD LIVER OIL [Concomitant]
  14. VITAMIN C WITH ROSE HIPS [Concomitant]

REACTIONS (1)
  - Swelling [Unknown]
